FAERS Safety Report 17363687 (Version 2)
Quarter: 2020Q2

REPORT INFORMATION
  Report Type: Spontaneous
  Country: JP (occurrence: JP)
  Receive Date: 20200203
  Receipt Date: 20200623
  Transmission Date: 20200713
  Serious: Yes (Hospitalization)
  Sender: FDA-Public Use
  Company Number: JP-ELI_LILLY_AND_COMPANY-JP202001010790

PATIENT
  Age: 74 Year
  Sex: Male
  Weight: 73.8 kg

DRUGS (4)
  1. FEBURIC [Concomitant]
     Active Substance: FEBUXOSTAT
     Dosage: 20 MG, DAILY
     Route: 048
  2. AZILVA [Concomitant]
     Active Substance: AZILSARTAN KAMEDOXOMIL
     Dosage: 40 MG, DAILY
     Route: 048
     Dates: end: 20200121
  3. TALTZ [Suspect]
     Active Substance: IXEKIZUMAB
     Indication: PSORIATIC ARTHROPATHY
     Dosage: 160 MG
     Route: 058
     Dates: start: 20191226, end: 20191226
  4. CILNIDIPINE [Concomitant]
     Active Substance: CILNIDIPINE
     Dosage: 10 MG, DAILY
     Route: 048

REACTIONS (4)
  - Pericarditis [Recovered/Resolved]
  - Pleural effusion [Recovering/Resolving]
  - Squamous cell carcinoma antigen increased [Recovered/Resolved]
  - Hyperkalaemia [Recovered/Resolved]

NARRATIVE: CASE EVENT DATE: 20200104
